FAERS Safety Report 9057253 (Version 2)
Quarter: 2013Q3

REPORT INFORMATION
  Report Type: Spontaneous
  Country: GB (occurrence: GB)
  Receive Date: 20130131
  Receipt Date: 20130808
  Transmission Date: 20140515
  Serious: Yes (Death)
  Sender: FDA-Public Use
  Company Number: GB-GLAXOSMITHKLINE-B0846487A

PATIENT
  Sex: Male
  Weight: 84.9 kg

DRUGS (7)
  1. AVANDIA [Suspect]
     Indication: DIABETES MELLITUS
     Route: 065
     Dates: start: 20020828, end: 20100915
  2. PIOGLITAZONE [Concomitant]
     Indication: DIABETES MELLITUS
     Dosage: 15MG PER DAY
     Route: 065
     Dates: start: 20100915
  3. ASPIRIN [Concomitant]
     Indication: CARDIAC DISORDER
     Dosage: 50MG PER DAY
     Route: 065
  4. LOSARTAN [Concomitant]
     Indication: CARDIAC DISORDER
     Dosage: 50MG PER DAY
     Route: 065
     Dates: start: 1999
  5. SIMVASTATIN [Concomitant]
     Indication: BLOOD CHOLESTEROL
     Dosage: 40MG AT NIGHT
     Route: 065
  6. BENDROFLUMETHIAZIDE [Concomitant]
     Indication: BLOOD PRESSURE
     Dosage: 2.5MG IN THE MORNING
     Route: 065
     Dates: start: 2005
  7. METFORMIN [Concomitant]
     Indication: DIABETES MELLITUS
     Route: 065
     Dates: start: 1998

REACTIONS (2)
  - Myocardial ischaemia [Fatal]
  - Injury [Unknown]
